FAERS Safety Report 8083480-2 (Version None)
Quarter: 2012Q1

REPORT INFORMATION
  Report Type: 
  Country: None (occurrence: None)
  Receive Date: 20120127
  Receipt Date: 20110127
  Transmission Date: 20120608
  Serious: No
  Sender: FDA-Public Use
  Company Number: US-ABBOTT-11P-163-0700946-00

PATIENT
  Age: 62 Year
  Sex: Female

DRUGS (7)
  1. HUMIRA [Suspect]
     Indication: CROHN'S DISEASE
     Dates: start: 20100921
  2. EFFEXOR [Concomitant]
     Indication: PANIC DISORDER
  3. VICODIN [Concomitant]
     Indication: PAIN
  4. VICODIN [Concomitant]
     Indication: ROTATOR CUFF SYNDROME
     Dosage: 10/325
     Route: 048
  5. VALIUM [Concomitant]
     Indication: ANXIETY
     Route: 048
  6. EFFEXOR [Concomitant]
     Indication: DEPRESSION
     Route: 048
  7. EFFEXOR [Concomitant]
     Indication: ANXIETY

REACTIONS (2)
  - FALL [None]
  - NASOPHARYNGITIS [None]
